FAERS Safety Report 24557069 (Version 1)
Quarter: 2024Q4

REPORT INFORMATION
  Report Type: Spontaneous
  Country: US (occurrence: US)
  Receive Date: 20241028
  Receipt Date: 20241028
  Transmission Date: 20250115
  Serious: No
  Sender: MYLAN
  Company Number: US-MYLANLABS-2024M1094922

PATIENT
  Sex: Male

DRUGS (1)
  1. BACLOFEN [Suspect]
     Active Substance: BACLOFEN
     Indication: Limb discomfort
     Dosage: UNK
     Route: 065

REACTIONS (3)
  - Incontinence [Unknown]
  - Hypotonia [Unknown]
  - Drug ineffective for unapproved indication [Unknown]
